FAERS Safety Report 14259725 (Version 2)
Quarter: 2018Q1

REPORT INFORMATION
  Report Type: Spontaneous
  Country: US (occurrence: US)
  Receive Date: 20171207
  Receipt Date: 20180208
  Transmission Date: 20180508
  Serious: No
  Sender: FDA-Public Use
  Company Number: US-PFIZER INC-2017522413

PATIENT
  Age: 60 Year
  Sex: Female

DRUGS (1)
  1. LYRICA [Suspect]
     Active Substance: PREGABALIN
     Indication: NEUROPATHY PERIPHERAL
     Dosage: 150 MG, DAILY (2 X 75 MG DAILY)
     Dates: start: 201008

REACTIONS (3)
  - Memory impairment [Not Recovered/Not Resolved]
  - Headache [Not Recovered/Not Resolved]
  - Balance disorder [Not Recovered/Not Resolved]
